FAERS Safety Report 12954957 (Version 1)
Quarter: 2016Q4

REPORT INFORMATION
  Report Type: Spontaneous
  Country: GB (occurrence: GB)
  Receive Date: 20161118
  Receipt Date: 20161118
  Transmission Date: 20170207
  Serious: Yes (Other)
  Sender: FDA-Public Use
  Company Number: GB-TEVA-712977ACC

PATIENT
  Age: 37 Year
  Sex: Male

DRUGS (1)
  1. CICLOSPORIN [Suspect]
     Active Substance: CYCLOSPORINE
     Indication: PSORIASIS
     Dosage: 700 MILLIGRAM DAILY; 350 MG, BID (ALTERANATE DAYS)
     Route: 065
     Dates: start: 2012, end: 2013

REACTIONS (2)
  - Skin disorder [Unknown]
  - Renal impairment [Recovered/Resolved]
